FAERS Safety Report 17858260 (Version 2)
Quarter: 2020Q2

REPORT INFORMATION
  Report Type: Report from Study
  Country: None (occurrence: US)
  Receive Date: 20200604
  Receipt Date: 20200605
  Transmission Date: 20200714
  Serious: No
  Sender: FDA-Public Use
  Company Number: US-US WORLDMEDS, LLC-USW201905-000952

PATIENT
  Age: 83 Year
  Sex: Male
  Weight: 71.66 kg

DRUGS (7)
  1. APOKYN [Suspect]
     Active Substance: APOMORPHINE HYDROCHLORIDE
     Indication: PARKINSON^S DISEASE
     Dosage: 30MG/3ML
     Route: 058
     Dates: start: 20190509, end: 20190509
  2. NAMZARIC [Concomitant]
     Active Substance: DONEPEZIL HYDROCHLORIDE\MEMANTINE HYDROCHLORIDE
     Dates: start: 201808
  3. LOSARTAN. [Concomitant]
     Active Substance: LOSARTAN
     Dates: start: 201808
  4. LEVODOPA/CARBIDOPA [Concomitant]
     Active Substance: CARBIDOPA\LEVODOPA
     Dates: start: 201808
  5. TIGAN [Concomitant]
     Active Substance: TRIMETHOBENZAMIDE HYDROCHLORIDE
     Dates: start: 20190506, end: 20190509
  6. LOVASTATIN. [Concomitant]
     Active Substance: LOVASTATIN
     Dates: start: 201808
  7. CARVEDILOL. [Concomitant]
     Active Substance: CARVEDILOL
     Dates: start: 201808

REACTIONS (3)
  - Hyperhidrosis [Recovered/Resolved]
  - Hypotension [Recovered/Resolved]
  - Somnolence [Recovered/Resolved]

NARRATIVE: CASE EVENT DATE: 20190509
